FAERS Safety Report 4766497-2 (Version None)
Quarter: 2005Q3

REPORT INFORMATION
  Report Type: 
  Country: None (occurrence: None)
  Receive Date: 20050909
  Receipt Date: 20050831
  Transmission Date: 20060218
  Serious: Yes (Hospitalization)
  Sender: FDA-Public Use
  Company Number: 033-1343-M0200017

PATIENT
  Age: 20 Day
  Weight: 4.125 kg

DRUGS (8)
  1. VIRACEPT [Suspect]
     Indication: HIV TEST POSITIVE
     Dosage: ORAL
     Route: 048
  2. COMBIVIR [Suspect]
     Indication: HIV INFECTION
     Dosage: PLACENTAL
     Route: 064
  3. RETROVIR [Suspect]
     Indication: HIV INFECTION
     Dosage: SEE IMAGE
     Route: 064
     Dates: start: 20000306, end: 20000306
  4. RETROVIR [Suspect]
     Indication: HIV INFECTION
     Dosage: SEE IMAGE
     Route: 064
     Dates: start: 20000120
  5. RETROVIR [Suspect]
     Indication: HIV INFECTION
     Dosage: SEE IMAGE
     Route: 064
     Dates: start: 20000306
  6. ISONIAZID [Suspect]
     Indication: TUBERCULOSIS
     Dates: start: 20000301
  7. RIFADIN [Suspect]
     Indication: TUBERCULOSIS
     Dates: start: 20000301
  8. BACTRIM [Concomitant]

REACTIONS (6)
  - BLOOD KETONE BODY [None]
  - BLOOD LACTIC ACID INCREASED [None]
  - CAESAREAN SECTION [None]
  - DRUG EXPOSURE DURING PREGNANCY [None]
  - LACTATE PYRUVATE RATIO INCREASED [None]
  - LACTIC ACIDOSIS [None]
